FAERS Safety Report 6567653-3 (Version None)
Quarter: 2010Q1

REPORT INFORMATION
  Report Type: 
  Country: None (occurrence: None)
  Receive Date: 20100203
  Receipt Date: 20100126
  Transmission Date: 20100710
  Serious: Yes (Hospitalization, Other)
  Sender: FDA-Public Use
  Company Number: US-BIOGENIDEC-2007BI000983

PATIENT
  Sex: Male
  Weight: 122 kg

DRUGS (9)
  1. TYSABRI [Suspect]
     Indication: MULTIPLE SCLEROSIS
     Route: 042
     Dates: start: 20061127, end: 20091101
  2. TYSABRI [Suspect]
     Route: 042
     Dates: start: 20100101, end: 20100101
  3. GLUCOPHAGE [Concomitant]
  4. ZESTRIL [Concomitant]
  5. LIPITOR [Concomitant]
  6. VITAMINS [Concomitant]
  7. BACLOFEN [Concomitant]
  8. PSYCHIATRIC MEDS NOT OTHERWISE SPECIFIED [Concomitant]
  9. LUNESTA [Concomitant]

REACTIONS (14)
  - ABSCESS BACTERIAL [None]
  - CELLULITIS [None]
  - CHEST WALL ABSCESS [None]
  - FOLLICULITIS [None]
  - HEADACHE [None]
  - HERPES ZOSTER [None]
  - MUSCULOSKELETAL PAIN [None]
  - NAUSEA [None]
  - ORAL HERPES [None]
  - PYREXIA [None]
  - SEPSIS [None]
  - SKIN INFECTION [None]
  - STAPHYLOCOCCAL INFECTION [None]
  - TENDONITIS [None]
